FAERS Safety Report 6119768-1 (Version None)
Quarter: 2009Q1

REPORT INFORMATION
  Report Type: 
  Country: None (occurrence: None)
  Receive Date: 20090311
  Receipt Date: 20090223
  Transmission Date: 20090719
  Serious: Yes (Other)
  Sender: FDA-Public Use
  Company Number: NO-1168788

PATIENT
  Age: 52 Year
  Sex: Female

DRUGS (1)
  1. MAXITROL [Suspect]
     Indication: POSTOPERATIVE CARE
     Dosage: 1 GTT QID
     Dates: start: 20051118, end: 20051125

REACTIONS (5)
  - CORNEAL DISORDER [None]
  - DRY EYE [None]
  - IMPAIRED WORK ABILITY [None]
  - LACRIMATION INCREASED [None]
  - ULCERATIVE KERATITIS [None]
